FAERS Safety Report 18261498 (Version 1)
Quarter: 2020Q3

REPORT INFORMATION
  Report Type: Spontaneous
  Country: PT (occurrence: PT)
  Receive Date: 20200914
  Receipt Date: 20200914
  Transmission Date: 20201103
  Serious: Yes (Hospitalization, Other)
  Sender: FDA-Public Use
  Company Number: PT-ACCORD-200400

PATIENT
  Age: 68 Year
  Sex: Female

DRUGS (9)
  1. IRBESARTAN. [Suspect]
     Active Substance: IRBESARTAN
     Indication: PRODUCT USED FOR UNKNOWN INDICATION
     Dosage: 150 MG
  2. RIFAMPICIN [Suspect]
     Active Substance: RIFAMPIN
     Indication: PRODUCT USED FOR UNKNOWN INDICATION
     Dosage: 600 MG, PER DAY
  3. DOXYCYCLINE. [Suspect]
     Active Substance: DOXYCYCLINE
     Indication: PRODUCT USED FOR UNKNOWN INDICATION
     Dosage: 100 MG, 2X PER DAY
  4. SIMVASTATIN. [Suspect]
     Active Substance: SIMVASTATIN
     Indication: PRODUCT USED FOR UNKNOWN INDICATION
  5. PARACETAMOL [Suspect]
     Active Substance: ACETAMINOPHEN
     Indication: PRODUCT USED FOR UNKNOWN INDICATION
  6. CYANOCOBALAMIN. [Suspect]
     Active Substance: CYANOCOBALAMIN
     Indication: PRODUCT USED FOR UNKNOWN INDICATION
  7. ACETYLSALICYLIC ACID [Suspect]
     Active Substance: ASPIRIN
     Indication: PRODUCT USED FOR UNKNOWN INDICATION
     Dosage: 100 MG
  8. FLUOXETINE [Suspect]
     Active Substance: FLUOXETINE HYDROCHLORIDE
     Indication: PRODUCT USED FOR UNKNOWN INDICATION
  9. ESOMEPRAZOLE/ESOMEPRAZOLE MAGNESIUM/ESOMEPRAZOLE SODIUM [Suspect]
     Active Substance: ESOMEPRAZOLE
     Indication: PRODUCT USED FOR UNKNOWN INDICATION

REACTIONS (7)
  - Normocytic anaemia [Recovering/Resolving]
  - Hypochromic anaemia [Recovering/Resolving]
  - Chronic gastritis [Recovered/Resolved]
  - Brucellosis [Recovered/Resolved]
  - Leukopenia [Recovered/Resolved]
  - Enteritis [Unknown]
  - Drug ineffective [Recovered/Resolved]
